FAERS Safety Report 4759811-5 (Version None)
Quarter: 2005Q3

REPORT INFORMATION
  Report Type: 
  Country: None (occurrence: None)
  Receive Date: 20050831
  Receipt Date: 20050831
  Transmission Date: 20060218
  Serious: Yes (Hospitalization, Other)
  Sender: FDA-Public Use
  Company Number: None

PATIENT
  Age: 31 Year
  Sex: Female

DRUGS (6)
  1. HYDROXYCHLOROQUINE SULFATE [Suspect]
     Indication: RENAL TRANSPLANT
     Dosage: 200 MG QD PO
     Route: 048
     Dates: start: 19950101, end: 20031001
  2. CALCIUM GLUCONATE [Concomitant]
  3. PREDNISONE [Concomitant]
  4. GCSF [Concomitant]
  5. RANITIDINE HCL [Concomitant]
  6. ROCALTROL [Concomitant]

REACTIONS (2)
  - PYREXIA [None]
  - TOXIC EPIDERMAL NECROLYSIS [None]
